FAERS Safety Report 18183432 (Version 4)
Quarter: 2021Q1

REPORT INFORMATION
  Report Type: Report from Study
  Country: CO (occurrence: CO)
  Receive Date: 20200822
  Receipt Date: 20210203
  Transmission Date: 20210419
  Serious: Yes (Life-Threatening, Other)
  Sender: FDA-Public Use
  Company Number: NVSC2020CO229587

PATIENT
  Age: 10 Year
  Sex: Male
  Weight: 34 kg

DRUGS (2)
  1. OMNITROPE [Suspect]
     Active Substance: SOMATROPIN
     Dosage: UNK UNK, QD
     Route: 058
     Dates: start: 20190723
  2. OMNITROPE [Suspect]
     Active Substance: SOMATROPIN
     Indication: GROWTH HORMONE DEFICIENCY
     Dosage: 1.2 MG, QD
     Route: 058
     Dates: start: 20190718, end: 20200609

REACTIONS (14)
  - Neutrophil count increased [Unknown]
  - Red cell distribution width increased [Unknown]
  - Immunosuppression [Recovering/Resolving]
  - Eosinophil count increased [Unknown]
  - Mean cell haemoglobin concentration decreased [Unknown]
  - Colitis ulcerative [Recovering/Resolving]
  - Mean cell volume increased [Unknown]
  - Blood gases abnormal [Unknown]
  - Weight increased [Unknown]
  - Mean cell haemoglobin decreased [Unknown]
  - Ill-defined disorder [Unknown]
  - Incorrect route of product administration [Unknown]
  - Lymphocyte count increased [Unknown]
  - Rectal haemorrhage [Recovering/Resolving]

NARRATIVE: CASE EVENT DATE: 201912
